FAERS Safety Report 25953171 (Version 3)
Quarter: 2025Q4

REPORT INFORMATION
  Report Type: Report from Study
  Country: US (occurrence: US)
  Receive Date: 20251023
  Receipt Date: 20251111
  Transmission Date: 20260118
  Serious: Yes (Hospitalization)
  Sender: BAYER HEALTHCARE PHARMACEUTICALS INC.
  Company Number: US-BAYER-2025A136864

PATIENT
  Age: 67 Year
  Sex: Male

DRUGS (8)
  1. STIVARGA [Suspect]
     Active Substance: REGORAFENIB MONOHYDRATE
     Indication: Colorectal cancer metastatic
     Dosage: 160 MG, QD DAYS 1 THROUGH 21 ON A 28 DAY CYCLE,
     Route: 048
     Dates: start: 20251006, end: 202510
  2. PEPCID [Concomitant]
     Active Substance: FAMOTIDINE
  3. ACYCLOVIR [Concomitant]
     Active Substance: ACYCLOVIR
  4. Turkey tail [Concomitant]
  5. HERBALS [Concomitant]
     Active Substance: HERBALS
  6. Chaga [Concomitant]
  7. HERBALS [Concomitant]
     Active Substance: HERBALS
  8. Athletic Greens ag1 [Concomitant]

REACTIONS (11)
  - Stomatitis [Not Recovered/Not Resolved]
  - Abdominal pain upper [Not Recovered/Not Resolved]
  - Dehydration [Not Recovered/Not Resolved]
  - Feeding disorder [Not Recovered/Not Resolved]
  - Fluid intake reduced [Not Recovered/Not Resolved]
  - Dysphagia [Not Recovered/Not Resolved]
  - Oropharyngeal pain [Not Recovered/Not Resolved]
  - Pain in extremity [Not Recovered/Not Resolved]
  - Oral pain [Not Recovered/Not Resolved]
  - Diarrhoea [Unknown]
  - Vomiting [Unknown]

NARRATIVE: CASE EVENT DATE: 20250101
